FAERS Safety Report 19504378 (Version 3)
Quarter: 2021Q4

REPORT INFORMATION
  Report Type: Report from Study
  Country: US (occurrence: US)
  Receive Date: 20210707
  Receipt Date: 20211005
  Transmission Date: 20220303
  Serious: Yes (Other)
  Sender: FDA-Public Use
  Company Number: US-GW PHARMA-202107USGW03249

PATIENT

DRUGS (2)
  1. EPIDIOLEX [Suspect]
     Active Substance: CANNABIDIOL
     Indication: Product used for unknown indication
     Dosage: 4.76MG/KG/DAY, 200 MILLIGRAM, BID
     Dates: start: 20210420
  2. EPIDIOLEX [Suspect]
     Active Substance: CANNABIDIOL
     Dosage: 9.523 MG/KG/DAY, 400 MILLIGRAM, BID
     Dates: end: 20210702

REACTIONS (2)
  - Urinary tract infection [Unknown]
  - Diarrhoea [Unknown]
